FAERS Safety Report 15363049 (Version 1)
Quarter: 2018Q3

REPORT INFORMATION
  Report Type: Spontaneous
  Country: DE (occurrence: DE)
  Receive Date: 20180907
  Receipt Date: 20180907
  Transmission Date: 20181010
  Serious: Yes (Life-Threatening)
  Sender: FDA-Public Use
  Company Number: PHHY2018DE093222

PATIENT
  Age: 60 Year
  Sex: Male

DRUGS (2)
  1. REVOLADE [Suspect]
     Active Substance: ELTROMBOPAG
     Dosage: 50 MG, QD
     Route: 065
  2. REVOLADE [Suspect]
     Active Substance: ELTROMBOPAG
     Indication: IMMUNE THROMBOCYTOPENIC PURPURA
     Dosage: UPTO 75 MG, QD
     Route: 065

REACTIONS (4)
  - Helicobacter infection [Recovered/Resolved]
  - Therapeutic response decreased [Recovered/Resolved]
  - Platelet count decreased [Recovering/Resolving]
  - Platelet count abnormal [Recovering/Resolving]
